FAERS Safety Report 25310723 (Version 1)
Quarter: 2025Q2

REPORT INFORMATION
  Report Type: Spontaneous
  Country: US (occurrence: US)
  Receive Date: 20250514
  Receipt Date: 20250514
  Transmission Date: 20250716
  Serious: No
  Sender: GLAND PHARMA LTD
  Company Number: US-GLANDPHARMA-US-2025GLNSPO01163

PATIENT

DRUGS (1)
  1. ZOLEDRONIC ACID [Suspect]
     Active Substance: ZOLEDRONIC ACID
     Indication: Product used for unknown indication
     Route: 042

REACTIONS (7)
  - Tremor [Unknown]
  - Pyrexia [Unknown]
  - Myalgia [Unknown]
  - Bone pain [Unknown]
  - Feeding disorder [Unknown]
  - Vomiting [Unknown]
  - Somnolence [Unknown]
